FAERS Safety Report 5099152-2 (Version None)
Quarter: 2006Q3

REPORT INFORMATION
  Report Type: 
  Country: None (occurrence: None)
  Receive Date: 20060731
  Receipt Date: 20050824
  Transmission Date: 20061208
  Serious: Yes (Other)
  Sender: FDA-Public Use
  Company Number: 217149

PATIENT
  Age: 58 Year
  Sex: Male

DRUGS (7)
  1. RITUXAN [Suspect]
     Indication: B-CELL LYMPHOMA
     Dosage: 900 MG, Q4W, INTRAVENOUS
     Route: 042
     Dates: start: 20040401, end: 20041201
  2. EFFEXOR XR [Concomitant]
  3. WELLBUTRIN [Concomitant]
  4. LISINOPRIL [Concomitant]
  5. HIDROCHLORTHIAZIDE (HYDROCHLOROTHIAZIDE) [Concomitant]
  6. ATENOLOL [Concomitant]
  7. CLARITIN [Concomitant]

REACTIONS (1)
  - HEPATITIS B [None]
